FAERS Safety Report 8798175 (Version 3)
Quarter: 2013Q2

REPORT INFORMATION
  Report Type: Spontaneous
  Country: US (occurrence: US)
  Receive Date: 20120920
  Receipt Date: 20130612
  Transmission Date: 20140414
  Serious: Yes (Hospitalization)
  Sender: FDA-Public Use
  Company Number: US-GILEAD-2012-0061460

PATIENT
  Sex: Male

DRUGS (4)
  1. LETAIRIS [Suspect]
     Indication: PULMONARY HYPERTENSION
     Dosage: 5 MG, UNK
     Route: 048
     Dates: start: 20111229
  2. LETAIRIS [Suspect]
     Indication: HEART DISEASE CONGENITAL
  3. FLOLAN [Concomitant]
  4. ADCIRCA [Concomitant]

REACTIONS (3)
  - Pulmonary oedema [Unknown]
  - Respiratory distress [Unknown]
  - Bronchitis [Recovered/Resolved]
